FAERS Safety Report 5048666-X (Version None)
Quarter: 2006Q3

REPORT INFORMATION
  Report Type: 
  Country: None (occurrence: None)
  Receive Date: 20060705
  Receipt Date: 20060621
  Transmission Date: 20061208
  Serious: Yes (Other)
  Sender: FDA-Public Use
  Company Number: DE200606004503

PATIENT
  Sex: Female

DRUGS (4)
  1. GEMZAR [Suspect]
     Indication: PAPILLARY THYROID CANCER
     Dosage: 1000 MG/M2, INTRAVENOUS
     Route: 042
  2. ZOFRAN [Concomitant]
  3. MCP (METOCLOPRAMIDE HYDROCHLORIDE) [Concomitant]
  4. KREON (PANCREATIN) [Concomitant]

REACTIONS (7)
  - C-REACTIVE PROTEIN INCREASED [None]
  - ERYTHEMA [None]
  - HYPERTHERMIA [None]
  - OEDEMA PERIPHERAL [None]
  - PAIN IN EXTREMITY [None]
  - THROMBOCYTHAEMIA [None]
  - VASCULITIS [None]
